FAERS Safety Report 8094730-0 (Version None)
Quarter: 2012Q1

REPORT INFORMATION
  Report Type: 
  Country: None (occurrence: None)
  Receive Date: 20120129
  Receipt Date: 20111215
  Transmission Date: 20120608
  Serious: No
  Sender: FDA-Public Use
  Company Number: US-ABBOTT-11P-163-0882342-00

PATIENT
  Age: 40 Year
  Sex: Male

DRUGS (1)
  1. HUMIRA [Suspect]
     Indication: PRODUCT USED FOR UNKNOWN INDICATION

REACTIONS (5)
  - ACCIDENTAL EXPOSURE [None]
  - DEVICE MALFUNCTION [None]
  - EYE BURNS [None]
  - INCORRECT DOSE ADMINISTERED [None]
  - EYE PAIN [None]
